FAERS Safety Report 8103289-0 (Version None)
Quarter: 2012Q1

REPORT INFORMATION
  Report Type: 
  Country: None (occurrence: None)
  Receive Date: 20120201
  Receipt Date: 20120123
  Transmission Date: 20120608
  Serious: Yes (Hospitalization)
  Sender: FDA-Public Use
  Company Number: US-BAYER-2011-095375

PATIENT
  Age: 17 Year
  Sex: Female
  Weight: 73 kg

DRUGS (8)
  1. ACETAMINOPHEN [Concomitant]
  2. YAZ [Suspect]
     Indication: ACNE
     Dosage: UNK
     Dates: start: 20090301, end: 20091005
  3. SOTRET [Concomitant]
     Dosage: 30 MG, BID
     Dates: start: 20090825
  4. CLARAVIS [Concomitant]
     Dosage: 30 MG, UNK
     Dates: start: 20090724, end: 20091024
  5. ZYRTEC [Concomitant]
  6. MOTRIN [Concomitant]
  7. ACCUTANE [Concomitant]
     Indication: ACNE
  8. FLUTICASONE PROPIONATE [Concomitant]
     Dosage: 0.05 MG, UNK
     Dates: start: 20090803

REACTIONS (3)
  - DEEP VEIN THROMBOSIS [None]
  - PULMONARY EMBOLISM [None]
  - PULMONARY FIBROSIS [None]
